FAERS Safety Report 11522680 (Version 1)
Quarter: 2015Q3

REPORT INFORMATION
  Report Type: Spontaneous
  Country: US (occurrence: US)
  Receive Date: 20150918
  Receipt Date: 20150918
  Transmission Date: 20151125
  Serious: Yes (Other)
  Sender: FDA-Public Use
  Company Number: US-ROCHE-680043

PATIENT
  Age: 54 Year
  Sex: Female
  Weight: 120.2 kg

DRUGS (7)
  1. PEGASYS [Suspect]
     Active Substance: PEGINTERFERON ALFA-2A
     Dosage: STARTED TREATMENT WITH 10 WEEKS OF SUSPENSION
     Route: 065
  2. RIBASPHERE [Suspect]
     Active Substance: RIBAVIRIN
     Indication: HEPATITIS C
     Dosage: DIVIDED DOSES
     Route: 048
     Dates: start: 20091217, end: 20100320
  3. PEGASYS [Suspect]
     Active Substance: PEGINTERFERON ALFA-2A
     Indication: HEPATITIS C
     Dosage: FORM: PRE-FILLED SYRINGE
     Route: 065
     Dates: start: 20091217, end: 20100320
  4. LISINOPRIL. [Concomitant]
     Active Substance: LISINOPRIL
     Route: 065
  5. RIBASPHERE [Suspect]
     Active Substance: RIBAVIRIN
     Dosage: STARTED TREATMENT WITH 10 WEEKS OF SUSPENSION
     Route: 048
  6. XANAX [Concomitant]
     Active Substance: ALPRAZOLAM
     Route: 065
  7. OMEPRAZOLE. [Concomitant]
     Active Substance: OMEPRAZOLE
     Route: 065

REACTIONS (14)
  - Retinopathy [Not Recovered/Not Resolved]
  - Weight decreased [Unknown]
  - Dry skin [Unknown]
  - Bronchitis [Not Recovered/Not Resolved]
  - Hypertension [Unknown]
  - Dry mouth [Unknown]
  - Dry eye [Unknown]
  - Nausea [Unknown]
  - Fatigue [Recovering/Resolving]
  - Fatigue [Not Recovered/Not Resolved]
  - Diabetes mellitus [Unknown]
  - Anxiety [Not Recovered/Not Resolved]
  - Medication error [Unknown]
  - No adverse event [Unknown]

NARRATIVE: CASE EVENT DATE: 20091217
